FAERS Safety Report 24049090 (Version 6)
Quarter: 2025Q3

REPORT INFORMATION
  Report Type: Report from Study
  Country: US (occurrence: US)
  Receive Date: 20240704
  Receipt Date: 20250728
  Transmission Date: 20251021
  Serious: Yes (Hospitalization, Other)
  Sender: TAKEDA
  Company Number: US-TAKEDA-2024TUS007977

PATIENT
  Sex: Female

DRUGS (4)
  1. TEDUGLUTIDE [Suspect]
     Active Substance: TEDUGLUTIDE
     Indication: Short-bowel syndrome
     Dosage: 0.2 MILLILITER, QD
     Dates: start: 202312
  2. TEDUGLUTIDE [Suspect]
     Active Substance: TEDUGLUTIDE
  3. TEDUGLUTIDE [Suspect]
     Active Substance: TEDUGLUTIDE
  4. TEDUGLUTIDE [Suspect]
     Active Substance: TEDUGLUTIDE

REACTIONS (20)
  - Vascular device infection [Not Recovered/Not Resolved]
  - Lethargy [Unknown]
  - Pain [Unknown]
  - Hyperthyroidism [Unknown]
  - Oesophageal disorder [Unknown]
  - Vomiting [Unknown]
  - Weight decreased [Unknown]
  - Overdose [Unknown]
  - Blood glucose decreased [Unknown]
  - Asthenia [Unknown]
  - Abdominal hernia [Unknown]
  - Feeding disorder [Unknown]
  - Hiatus hernia [Unknown]
  - Hypoglycaemia [Unknown]
  - Dizziness [Unknown]
  - Fall [Unknown]
  - Constipation [Recovered/Resolved]
  - Arthralgia [Unknown]
  - Nausea [Unknown]
  - Cholelithiasis [Unknown]
